FAERS Safety Report 5664146-2 (Version None)
Quarter: 2008Q1

REPORT INFORMATION
  Report Type: 
  Country: None (occurrence: None)
  Receive Date: 20080314
  Receipt Date: 20080314
  Transmission Date: 20080703
  Serious: Yes (Death, Hospitalization)
  Sender: FDA-Public Use
  Company Number: None

PATIENT
  Age: 73 Year
  Sex: Female

DRUGS (1)
  1. HEPARIN [Suspect]
     Indication: THROMBOSIS

REACTIONS (12)
  - ABDOMINAL PAIN UPPER [None]
  - BLOOD COUNT ABNORMAL [None]
  - DIARRHOEA [None]
  - DISORIENTATION [None]
  - DYSPHAGIA [None]
  - FORMICATION [None]
  - HAEMORRHAGE [None]
  - NAUSEA [None]
  - SWELLING [None]
  - THIRST [None]
  - UNRESPONSIVE TO STIMULI [None]
  - VOMITING [None]
